FAERS Safety Report 22175920 (Version 1)
Quarter: 2023Q2

REPORT INFORMATION
  Report Type: Spontaneous
  Country: PL (occurrence: PL)
  Receive Date: 20230405
  Receipt Date: 20230405
  Transmission Date: 20230722
  Serious: Yes (Other)
  Sender: FDA-Public Use
  Company Number: PL-002147023-NVSC2023PL077121

PATIENT
  Sex: Female

DRUGS (2)
  1. MIDOSTAURIN [Suspect]
     Active Substance: MIDOSTAURIN
     Indication: Acute myeloid leukaemia
     Dosage: UNK
     Route: 065
  2. METHOTREXATE SODIUM [Concomitant]
     Active Substance: METHOTREXATE SODIUM
     Indication: Graft versus host disease
     Dosage: UNK
     Route: 065

REACTIONS (20)
  - Septic shock [Unknown]
  - Mycobacterium avium complex infection [Unknown]
  - Liver injury [Unknown]
  - Graft versus host disease [Recovering/Resolving]
  - Cytomegalovirus infection [Unknown]
  - Hepatitis [Unknown]
  - Necrosis [Unknown]
  - Haemorrhage [Unknown]
  - Hyperbilirubinaemia [Unknown]
  - Pancreatitis [Unknown]
  - Skin lesion [Recovering/Resolving]
  - Lymphadenopathy [Unknown]
  - Parotitis [Unknown]
  - Rash erythematous [Unknown]
  - Hepatic enzyme increased [Unknown]
  - Swelling [Unknown]
  - Neutrophil count increased [Unknown]
  - Escherichia infection [Unknown]
  - Sinusitis [Unknown]
  - Diarrhoea [Unknown]
